FAERS Safety Report 5615348-2 (Version None)
Quarter: 2008Q1

REPORT INFORMATION
  Report Type: 
  Country: None (occurrence: None)
  Receive Date: 20080206
  Receipt Date: 20080131
  Transmission Date: 20080703
  Serious: Yes (Hospitalization)
  Sender: FDA-Public Use
  Company Number: CH-BRISTOL-MYERS SQUIBB COMPANY-14062780

PATIENT
  Age: 48 Year
  Sex: Male

DRUGS (7)
  1. REYATAZ [Suspect]
     Indication: HIV INFECTION
     Route: 048
     Dates: end: 20071001
  2. NORVIR [Suspect]
     Indication: HIV INFECTION
     Route: 048
     Dates: end: 20071001
  3. KIVEXA [Concomitant]
     Indication: HIV INFECTION
     Route: 048
  4. ASPIRIN [Concomitant]
     Dosage: 100MG TABLET IS TAKEN
     Route: 048
  5. RENITEN [Concomitant]
     Route: 048
  6. CRESTOR [Concomitant]
     Route: 048
  7. BELOC [Concomitant]
     Route: 048

REACTIONS (1)
  - CORONARY ARTERY RESTENOSIS [None]
